FAERS Safety Report 9604494 (Version 1)
Quarter: 2013Q4

REPORT INFORMATION
  Report Type: Spontaneous
  Country: US (occurrence: US)
  Receive Date: 20131008
  Receipt Date: 20131008
  Transmission Date: 20140711
  Serious: Yes (Hospitalization)
  Sender: FDA-Public Use
  Company Number: US-PFIZER INC-2013286148

PATIENT
  Age: 55 Year
  Sex: Female

DRUGS (1)
  1. RAPAMUNE [Suspect]
     Indication: LIVER TRANSPLANT
     Dosage: 1 MG, 3X/DAY
     Dates: start: 20070605

REACTIONS (4)
  - Infection [Unknown]
  - Cerebrovascular accident [Unknown]
  - Liver transplant rejection [Unknown]
  - Off label use [Unknown]
